FAERS Safety Report 8462804-8 (Version None)
Quarter: 2012Q2

REPORT INFORMATION
  Report Type: 
  Country: None (occurrence: None)
  Receive Date: 20120625
  Receipt Date: 20120619
  Transmission Date: 20120825
  Serious: Yes (Death)
  Sender: FDA-Public Use
  Company Number: BE-ROCHE-1079748

PATIENT
  Sex: Female
  Weight: 75 kg

DRUGS (1)
  1. TAMIFLU [Suspect]
     Indication: INFLUENZA
     Route: 042
     Dates: start: 20120605

REACTIONS (1)
  - INFECTION [None]
